FAERS Safety Report 10407696 (Version 1)
Quarter: 2014Q3

REPORT INFORMATION
  Report Type: Spontaneous
  Country: US (occurrence: US)
  Receive Date: 20140825
  Receipt Date: 20140825
  Transmission Date: 20150326
  Serious: No
  Sender: FDA-Public Use
  Company Number: US-ENDO PHARMACEUTICALS INC.-PRED20130054

PATIENT
  Sex: Male

DRUGS (2)
  1. PREDNISONE TABLETS [Suspect]
     Active Substance: PREDNISONE
     Indication: MYASTHENIA GRAVIS
     Dosage: HIGH DOSE
     Route: 048
  2. BACILLUS CALMETTE-GUERIN [Suspect]
     Active Substance: BCG VACCINE
     Indication: BLADDER CANCER
     Dosage: UNKNOWN
     Route: 065

REACTIONS (1)
  - Treatment failure [Recovered/Resolved]
